FAERS Safety Report 14983918 (Version 2)
Quarter: 2018Q2

REPORT INFORMATION
  Report Type: Spontaneous
  Country: US (occurrence: US)
  Receive Date: 20180607
  Receipt Date: 20180626
  Transmission Date: 20180711
  Serious: Yes (Other)
  Sender: FDA-Public Use
  Company Number: US-GLAXOSMITHKLINE-US2018098082

PATIENT
  Age: 61 Year
  Sex: Female

DRUGS (1)
  1. PARODONTAX [Suspect]
     Active Substance: STANNOUS FLUORIDE
     Indication: DENTAL CARE
     Dosage: UNK
     Dates: start: 20180517, end: 20180524

REACTIONS (4)
  - Oral mucosal erythema [Unknown]
  - Chemical burn of gastrointestinal tract [Unknown]
  - Oral mucosal exfoliation [Unknown]
  - Stomatitis [Unknown]

NARRATIVE: CASE EVENT DATE: 20180524
